FAERS Safety Report 4295402-0 (Version None)
Quarter: 2004Q1

REPORT INFORMATION
  Report Type: 
  Country: None (occurrence: None)
  Receive Date: 20040216
  Receipt Date: 20030716
  Transmission Date: 20041129
  Serious: No
  Sender: FDA-Public Use
  Company Number: US-GLAXOSMITHKLINE-A0417860A

PATIENT
  Age: 58 Year
  Sex: Female

DRUGS (1)
  1. LAMICTAL [Suspect]
     Indication: HEADACHE
     Dosage: 100MG TWICE PER DAY
     Route: 048
     Dates: start: 20030611, end: 20030714

REACTIONS (1)
  - RASH [None]
